FAERS Safety Report 23452412 (Version 1)
Quarter: 2024Q1

REPORT INFORMATION
  Report Type: Spontaneous
  Country: US (occurrence: US)
  Receive Date: 20240129
  Receipt Date: 20240129
  Transmission Date: 20240410
  Serious: No
  Sender: FDA-Public Use
  Company Number: US-PFIZER INC-202400022431

PATIENT
  Age: 74 Year
  Sex: Female
  Weight: 54.43 kg

DRUGS (1)
  1. ESTRING [Suspect]
     Active Substance: ESTRADIOL
     Dosage: UNK

REACTIONS (3)
  - Discomfort [Unknown]
  - Product availability issue [Unknown]
  - Therapy interrupted [Unknown]
